FAERS Safety Report 6528627-1 (Version None)
Quarter: 2010Q1

REPORT INFORMATION
  Report Type: 
  Country: None (occurrence: None)
  Receive Date: 20100105
  Receipt Date: 20100105
  Transmission Date: 20100710
  Serious: No
  Sender: FDA-Public Use
  Company Number: None

PATIENT
  Age: 59 Year
  Sex: Female

DRUGS (1)
  1. TYLENOL (CAPLET) [Suspect]
     Indication: ARTHRITIS
     Dosage: 1-2 CAPLETS EVERY 8 HOURS
     Dates: start: 20090901, end: 20091230

REACTIONS (3)
  - ABDOMINAL PAIN UPPER [None]
  - DIARRHOEA [None]
  - PRODUCT QUALITY ISSUE [None]
